FAERS Safety Report 13896276 (Version 1)
Quarter: 2017Q3

REPORT INFORMATION
  Report Type: Spontaneous
  Country: US (occurrence: US)
  Receive Date: 20170822
  Receipt Date: 20170822
  Transmission Date: 20171127
  Serious: Yes (Hospitalization, Other)
  Sender: FDA-Public Use
  Company Number: None

PATIENT
  Age: 56 Year
  Sex: Female
  Weight: 94.05 kg

DRUGS (5)
  1. LIPITOR [Concomitant]
     Active Substance: ATORVASTATIN CALCIUM
  2. CONTRAVE [Suspect]
     Active Substance: BUPROPION HYDROCHLORIDE\NALTREXONE HYDROCHLORIDE
     Indication: WEIGHT CONTROL
     Dosage: ?          QUANTITY:2 TABLET(S);?
     Route: 048
     Dates: start: 20170709, end: 20170811
  3. OMNEPRIZOL [Concomitant]
  4. DIAVAN HCT [Concomitant]
  5. TOFRUNIL [Concomitant]

REACTIONS (5)
  - Fall [None]
  - Accidental overdose [None]
  - Antidepressant drug level increased [None]
  - Concussion [None]
  - Seizure [None]

NARRATIVE: CASE EVENT DATE: 20170811
